FAERS Safety Report 8405492-9 (Version None)
Quarter: 2012Q2

REPORT INFORMATION
  Report Type: 
  Country: None (occurrence: None)
  Receive Date: 20120604
  Receipt Date: 20120524
  Transmission Date: 20120825
  Serious: Yes (Hospitalization)
  Sender: FDA-Public Use
  Company Number: DE-BIOGENIDEC-2012BI018882

PATIENT
  Age: 42 Year
  Sex: Female
  Weight: 65 kg

DRUGS (4)
  1. AVONEX [Suspect]
     Indication: MULTIPLE SCLEROSIS
     Route: 030
     Dates: start: 20110301
  2. BRONCHORETARD [Concomitant]
     Indication: PRODUCT USED FOR UNKNOWN INDICATION
  3. SOLVEX [Concomitant]
     Indication: PRODUCT USED FOR UNKNOWN INDICATION
  4. LEVOTHYROXINE SODIUM [Concomitant]
     Indication: PRODUCT USED FOR UNKNOWN INDICATION

REACTIONS (2)
  - ATAXIA [None]
  - VISUAL IMPAIRMENT [None]
